FAERS Safety Report 8226106-7 (Version None)
Quarter: 2012Q1

REPORT INFORMATION
  Report Type: 
  Country: None (occurrence: None)
  Receive Date: 20120319
  Receipt Date: 20120314
  Transmission Date: 20120608
  Serious: Yes (Other)
  Sender: FDA-Public Use
  Company Number: GER/UKI/12/0023451

PATIENT
  Age: 64 Year
  Sex: Male
  Weight: 67.13 kg

DRUGS (7)
  1. ESOMEPRAZOLE MAGNESIUM [Concomitant]
  2. ASPIRIN [Concomitant]
  3. METOCLOPRAMIDE [Concomitant]
  4. ANUSOL (ANUSOL /00117301/) [Concomitant]
  5. OMEPRAZOLE [Suspect]
     Indication: PRODUCT USED FOR UNKNOWN INDICATION
     Dates: start: 20120302
  6. OMEPRAZOLE [Suspect]
     Indication: PRODUCT USED FOR UNKNOWN INDICATION
     Dates: start: 20111014, end: 20111209
  7. SIMVASTATIN [Concomitant]

REACTIONS (2)
  - PALPITATIONS [None]
  - SUPRAVENTRICULAR EXTRASYSTOLES [None]
